FAERS Safety Report 5904391-1 (Version None)
Quarter: 2008Q3

REPORT INFORMATION
  Report Type: 
  Country: None (occurrence: None)
  Receive Date: 20080930
  Receipt Date: 20080930
  Transmission Date: 20090109
  Serious: Yes (Death)
  Sender: FDA-Public Use
  Company Number: None

PATIENT
  Sex: Male

DRUGS (3)
  1. CLOFARABIN [Suspect]
     Indication: STEM CELL TRANSPLANT
     Dosage: 92MG DAILY IV DRIP
     Route: 041
     Dates: start: 20080821, end: 20080825
  2. CAMPATH [Suspect]
     Indication: STEM CELL TRANSPLANT
     Dosage: 20 MG DAILY IV DRIP
     Route: 041
     Dates: start: 20080821, end: 20080825
  3. MELPHALAN [Suspect]
     Dosage: 322 MG DAILY IV DRIP
     Route: 041
     Dates: start: 20080826, end: 20080826

REACTIONS (5)
  - BLOOD CREATINE INCREASED [None]
  - DIALYSIS [None]
  - GENERAL PHYSICAL HEALTH DETERIORATION [None]
  - HYPOTENSION [None]
  - LUNG DISORDER [None]
